FAERS Safety Report 9397504 (Version 5)
Quarter: 2013Q4

REPORT INFORMATION
  Report Type: Spontaneous
  Country: GB (occurrence: GB)
  Receive Date: 20130712
  Receipt Date: 20131211
  Transmission Date: 20140711
  Serious: Yes (Hospitalization, Disabling, Other)
  Sender: FDA-Public Use
  Company Number: GB-JNJFOC-20130702738

PATIENT
  Age: 35 Year
  Sex: Female
  Weight: 80 kg

DRUGS (2)
  1. CILEST [Suspect]
     Indication: CONTRACEPTION
     Route: 048
     Dates: start: 20021008, end: 20130515
  2. DICLOFENAC [Concomitant]
     Indication: MUSCULOSKELETAL PAIN
     Route: 065
     Dates: start: 20130425, end: 20130515

REACTIONS (6)
  - Cerebral haemorrhage [Unknown]
  - Memory impairment [Unknown]
  - Headache [Unknown]
  - Depression [Unknown]
  - Cerebral venous thrombosis [Not Recovered/Not Resolved]
  - Partial seizures [Recovering/Resolving]
